FAERS Safety Report 19447516 (Version 1)
Quarter: 2021Q2

REPORT INFORMATION
  Report Type: Spontaneous
  Country: ES (occurrence: ES)
  Receive Date: 20210622
  Receipt Date: 20210622
  Transmission Date: 20210717
  Serious: Yes (Hospitalization)
  Sender: FDA-Public Use
  Company Number: ES-TEVA-2021-ES-1923999

PATIENT
  Age: 30 Year
  Sex: Female

DRUGS (4)
  1. MOXIFLOXACINO (1119A) [Suspect]
     Active Substance: MOXIFLOXACIN HYDROCHLORIDE
     Indication: TONSILLITIS
     Dosage: 400 MILLIGRAM DAILY; 1 CP DAY
     Route: 048
     Dates: start: 20180311, end: 20180317
  2. IBUPROFENO (1769A) [Concomitant]
     Active Substance: IBUPROFEN
     Dosage: 400MILLIGRAM
     Route: 048
     Dates: start: 20180311, end: 20180314
  3. BENCILPENICILINA (106A) [Suspect]
     Active Substance: PENICILLIN G
     Indication: TONSILLITIS
     Route: 030
     Dates: start: 20180309, end: 20180309
  4. OMEPRAZOL (2141A) [Concomitant]
     Active Substance: OMEPRAZOLE
     Dates: start: 20180311, end: 20180314

REACTIONS (2)
  - Acute kidney injury [Recovered/Resolved]
  - Tubulointerstitial nephritis [Recovered/Resolved]

NARRATIVE: CASE EVENT DATE: 20180317
